FAERS Safety Report 16677315 (Version 1)
Quarter: 2019Q3

REPORT INFORMATION
  Report Type: Other
  Country: IT (occurrence: IT)
  Receive Date: 20190807
  Receipt Date: 20190807
  Transmission Date: 20191004
  Serious: Yes (Other)
  Sender: FDA-Public Use
  Company Number: IT-MACLEODS PHARMACEUTICALS US LTD-MAC2019022414

PATIENT

DRUGS (7)
  1. TRIHEXYPHENIDYL [Suspect]
     Active Substance: TRIHEXYPHENIDYL
     Indication: DYSTONIA
     Dosage: 6 MILLIGRAM, QD
  2. TRIHEXYPHENIDYL [Suspect]
     Active Substance: TRIHEXYPHENIDYL
     Indication: PRODUCT USED FOR UNKNOWN INDICATION
     Dosage: 10 MILLIGRAM, QD
     Route: 065
  3. LORAZEPAM. [Concomitant]
     Active Substance: LORAZEPAM
     Dosage: 4 MILLIGRAM, QD
     Route: 065
  4. LORAZEPAM. [Concomitant]
     Active Substance: LORAZEPAM
     Indication: HIPPOCAMPAL SCLEROSIS
     Dosage: 4.5 MILLIGRAM, QD
     Route: 065
  5. CARBAMAZEPINE. [Concomitant]
     Active Substance: CARBAMAZEPINE
     Indication: CLONIC CONVULSION
     Dosage: 200 MILLIGRAM, QD
     Route: 065
  6. ARIPIPRAZOLE. [Suspect]
     Active Substance: ARIPIPRAZOLE
     Indication: MAJOR DEPRESSION
     Dosage: 7.5 MILLIGRAM, QD DOSE INCREASED UPTO 7.5MG
     Route: 065
  7. FLURANIZINE [Concomitant]
     Indication: DYSTONIA
     Dosage: 5 MILLIGRAM, QD
     Route: 065

REACTIONS (3)
  - Dystonia [Recovered/Resolved]
  - Psychiatric symptom [Recovered/Resolved]
  - Condition aggravated [Recovered/Resolved]
